FAERS Safety Report 7577003-1 (Version None)
Quarter: 2011Q2

REPORT INFORMATION
  Report Type: 
  Country: None (occurrence: None)
  Receive Date: 20110624
  Receipt Date: 20110624
  Transmission Date: 20111010
  Serious: Yes (Hospitalization)
  Sender: FDA-Public Use
  Company Number: None

PATIENT
  Age: 55 Year
  Sex: Male
  Weight: 102 kg

DRUGS (5)
  1. METOPROLOL TARTRATE [Concomitant]
  2. PAROXETINE HCL [Concomitant]
  3. HYDROCODONE BITARTRATE AND ACETAMINOPHEN [Concomitant]
  4. WARFARIN SODIUM [Suspect]
     Indication: ANTICOAGULANT THERAPY
     Dosage: 7.5 MG ALT WITH 3.5 MG DAILY PO LONG TERM TX
     Route: 048
  5. WARFARIN SODIUM [Suspect]
     Indication: AORTIC VALVE REPLACEMENT
     Dosage: 7.5 MG ALT WITH 3.5 MG DAILY PO LONG TERM TX
     Route: 048

REACTIONS (4)
  - MELAENA [None]
  - EPISTAXIS [None]
  - REFUSAL OF TREATMENT BY PATIENT [None]
  - HAEMATOCHEZIA [None]
